FAERS Safety Report 8910617 (Version 2)
Quarter: 2012Q4

REPORT INFORMATION
  Report Type: Report from Study
  Country: IT (occurrence: IT)
  Receive Date: 20121114
  Receipt Date: 20121121
  Transmission Date: 20130627
  Serious: Yes (Life-Threatening, Hospitalization)
  Sender: FDA-Public Use
  Company Number: IT-GLAXOSMITHKLINE-B0844319A

PATIENT
  Age: 43 Year
  Sex: Female
  Weight: 55 kg

DRUGS (2)
  1. PAZOPANIB [Suspect]
     Indication: OVARIAN CANCER
     Dosage: 800MG Per day
     Route: 048
     Dates: start: 20101215, end: 20110114
  2. PACLITAXEL [Suspect]
     Indication: OVARIAN CANCER
     Dosage: 80MGM2 Weekly
     Route: 042
     Dates: start: 20101215, end: 20110114

REACTIONS (1)
  - Subileus [Recovered/Resolved with Sequelae]
